FAERS Safety Report 8792341 (Version 2)
Quarter: 2015Q2

REPORT INFORMATION
  Report Type: Report from Study
  Country: US (occurrence: US)
  Receive Date: 20120917
  Receipt Date: 20150625
  Transmission Date: 20150821
  Serious: Yes (Death)
  Sender: FDA-Public Use
  Company Number: US-ROCHE-1129217

PATIENT
  Sex: Female

DRUGS (19)
  1. GEMZAR [Concomitant]
     Active Substance: GEMCITABINE HYDROCHLORIDE
     Dosage: IN 150 ML NORMAL SALINE
     Route: 042
     Dates: start: 20080402
  2. GEMZAR [Concomitant]
     Active Substance: GEMCITABINE HYDROCHLORIDE
     Dosage: IN 150 ML NORMAL SALINE
     Route: 042
  3. 5-FLUOROURACIL [Concomitant]
     Active Substance: FLUOROURACIL
     Route: 065
  4. DECADRON [Concomitant]
     Active Substance: DEXAMETHASONE
     Route: 065
  5. CATHFLO ACTIVASE [Concomitant]
     Active Substance: ALTEPLASE
     Route: 065
  6. AVASTIN [Suspect]
     Active Substance: BEVACIZUMAB
     Dosage: IN 100 ML SALINE?THERAPY DATE: 09/SEP/2008
     Route: 042
     Dates: start: 20080902
  7. GEMZAR [Concomitant]
     Active Substance: GEMCITABINE HYDROCHLORIDE
     Dosage: IN 150 ML NORMAL SALINE
     Route: 042
  8. 5-FLUOROURACIL [Concomitant]
     Active Substance: FLUOROURACIL
     Route: 042
  9. NEULASTA [Concomitant]
     Active Substance: PEGFILGRASTIM
     Route: 065
  10. ARANESP [Concomitant]
     Active Substance: DARBEPOETIN ALFA
     Route: 065
     Dates: start: 20080314
  11. ARANESP [Concomitant]
     Active Substance: DARBEPOETIN ALFA
     Route: 065
     Dates: start: 20080909
  12. DECADRON [Concomitant]
     Active Substance: DEXAMETHASONE
     Route: 065
  13. AVASTIN [Suspect]
     Active Substance: BEVACIZUMAB
     Indication: CHOLANGIOCARCINOMA
     Dosage: IN 100 ML SALINE?THERAPY DATE: 25/AUG/2008
     Route: 042
     Dates: start: 20080815
  14. ALOXI [Concomitant]
     Active Substance: PALONOSETRON HYDROCHLORIDE
     Dosage: 5 ML
     Route: 065
  15. HEPARIN [Concomitant]
     Active Substance: HEPARIN SODIUM
     Dosage: DOSE: 500 U
     Route: 042
  16. AVASTIN [Suspect]
     Active Substance: BEVACIZUMAB
     Dosage: IN 100 ML SALINE?THERAPY DATE: 16/SEP/2008, 30/SEP/2008, 14/OCT/2008 AND 28/OCT/2008
     Route: 042
     Dates: start: 20080916
  17. 5-FLUOROURACIL [Concomitant]
     Active Substance: FLUOROURACIL
     Route: 040
  18. NORMAL SALINE [Concomitant]
     Active Substance: SODIUM CHLORIDE
     Route: 065
  19. LEUCOVORIN [Concomitant]
     Active Substance: LEUCOVORIN
     Dosage: IN 250 ML NORMAL SALINE
     Route: 042

REACTIONS (3)
  - Death [Fatal]
  - Off label use [Unknown]
  - Protein urine present [Unknown]
